FAERS Safety Report 16937232 (Version 13)
Quarter: 2022Q2

REPORT INFORMATION
  Report Type: Spontaneous
  Country: US (occurrence: None)
  Receive Date: 20191019
  Receipt Date: 20220629
  Transmission Date: 20220721
  Serious: Yes (Other)
  Sender: FDA-Public Use
  Company Number: US-ROCHE-2445426

PATIENT
  Age: 50 Year
  Sex: Female

DRUGS (5)
  1. XOLAIR [Suspect]
     Active Substance: OMALIZUMAB
     Indication: Asthma
     Dosage: ONGOING.
     Route: 058
     Dates: start: 2018
  2. XOLAIR [Suspect]
     Active Substance: OMALIZUMAB
     Indication: Complement factor abnormal
     Route: 058
     Dates: start: 20201103
  3. XOLAIR [Suspect]
     Active Substance: OMALIZUMAB
     Dosage: 150 MG VIAL
     Route: 058
     Dates: start: 202011
  4. XOLAIR [Suspect]
     Active Substance: OMALIZUMAB
     Dosage: 150 MG VIAL
     Route: 058
     Dates: start: 20191009
  5. TAKHZYRO [Concomitant]
     Active Substance: LANADELUMAB-FLYO

REACTIONS (7)
  - Respiratory tract infection [Unknown]
  - Abdominal distension [Recovered/Resolved]
  - Swelling face [Recovered/Resolved]
  - Pharyngeal swelling [Recovered/Resolved]
  - Abdominal distension [Unknown]
  - Herpes zoster [Unknown]
  - Pharyngitis streptococcal [Unknown]

NARRATIVE: CASE EVENT DATE: 20210621
